FAERS Safety Report 4414343-9 (Version None)
Quarter: 2004Q3

REPORT INFORMATION
  Report Type: 
  Country: None (occurrence: None)
  Receive Date: 20040729
  Receipt Date: 20040720
  Transmission Date: 20050211
  Serious: Yes (Other)
  Sender: FDA-Public Use
  Company Number: 2004224640US

PATIENT
  Sex: Female

DRUGS (3)
  1. PROVERA [Suspect]
     Dates: start: 19960326, end: 19991211
  2. PREMARIN [Suspect]
     Dates: start: 19960326, end: 19991211
  3. PREMPRO [Suspect]
     Dates: start: 19991211, end: 20011201

REACTIONS (1)
  - BREAST CANCER FEMALE [None]
